FAERS Safety Report 4751164-1 (Version None)
Quarter: 2005Q3

REPORT INFORMATION
  Report Type: 
  Country: None (occurrence: None)
  Receive Date: 20050822
  Receipt Date: 20050808
  Transmission Date: 20060218
  Serious: Yes (Life-Threatening, Other)
  Sender: FDA-Public Use
  Company Number: 2005112622

PATIENT
  Age: 56 Year
  Sex: Female

DRUGS (11)
  1. PREDNISONE [Suspect]
     Indication: RHEUMATOID ARTHRITIS
     Dosage: 5 MG, ORAL
     Route: 048
  2. TRAZODONE HCL [Suspect]
     Indication: MYOCARDIAL ISCHAEMIA
     Dosage: 50 MG, ORAL
     Route: 048
     Dates: start: 20050704
  3. ACETYLSALICYLIC ACID SRT [Suspect]
     Indication: ILL-DEFINED DISORDER
     Dosage: 150 MG, ORAL
     Route: 048
     Dates: end: 20050718
  4. FOLIC ACID [Concomitant]
  5. SIMVASTATIN [Concomitant]
  6. DILTIAZEM [Concomitant]
  7. BEDNROFLUAZIDE (BENDROFLUMETHIAZIDE) [Concomitant]
  8. FLUCLOXACILLIN [Concomitant]
  9. DESLORATADINE [Concomitant]
  10. METHOTREXATE [Concomitant]
  11. ESOMEPRAZOLE [Concomitant]

REACTIONS (1)
  - GASTROINTESTINAL HAEMORRHAGE [None]
